FAERS Safety Report 5849006-6 (Version None)
Quarter: 2008Q3

REPORT INFORMATION
  Report Type: 
  Country: None (occurrence: None)
  Receive Date: 20080814
  Receipt Date: 20080811
  Transmission Date: 20090109
  Serious: Yes (Disabling)
  Sender: FDA-Public Use
  Company Number: APP200800740

PATIENT
  Age: 19 Year
  Sex: Male

DRUGS (3)
  1. SENSORCAINE [Suspect]
     Indication: MUSCULOSKELETAL PAIN
     Dosage: 300 ML, CONTINUOUS VIA PAIN PUMP, INTRA-ARTICULAR
     Route: 014
     Dates: start: 20050725
  2. SENSORCAINE [Suspect]
     Indication: LOCAL ANAESTHESIA
     Dosage: 20 ML
     Dates: start: 20050725
  3. SODIUM CHLORIDE [Concomitant]

REACTIONS (4)
  - CHONDROLYSIS [None]
  - MOVEMENT DISORDER [None]
  - MUSCULOSKELETAL DISCOMFORT [None]
  - MUSCULOSKELETAL PAIN [None]
